FAERS Safety Report 16526498 (Version 2)
Quarter: 2019Q3

REPORT INFORMATION
  Report Type: Report from Study
  Country: US (occurrence: US)
  Receive Date: 20190703
  Receipt Date: 20190705
  Transmission Date: 20191004
  Serious: Yes (Death, Other)
  Sender: FDA-Public Use
  Company Number: US-TAIHO ONCOLOGY  INC-EU-2019-02165

PATIENT
  Age: 54 Year
  Sex: Male

DRUGS (2)
  1. LONSURF [Suspect]
     Active Substance: TIPIRACIL HYDROCHLORIDE\TRIFLURIDINE
     Indication: COLON CANCER
     Dosage: CURRENT CYCLE UNKNOWN
     Route: 048
     Dates: start: 20190412
  2. VITAMIN C [Concomitant]
     Active Substance: ASCORBIC ACID
     Dosage: NI

REACTIONS (4)
  - Intestinal obstruction [Unknown]
  - Death [Fatal]
  - Intestinal perforation [Unknown]
  - Sepsis [Unknown]

NARRATIVE: CASE EVENT DATE: 2019
